FAERS Safety Report 23895027 (Version 1)
Quarter: 2024Q2

REPORT INFORMATION
  Report Type: Spontaneous
  Country: US (occurrence: None)
  Receive Date: 20240524
  Receipt Date: 20240524
  Transmission Date: 20240715
  Serious: No
  Sender: FDA-Public Use
  Company Number: US-ROCHE-3366571

PATIENT
  Sex: Male
  Weight: 74.91 kg

DRUGS (9)
  1. ACTEMRA [Suspect]
     Active Substance: TOCILIZUMAB
     Indication: Giant cell arteritis
     Dosage: STRENGTH: 162 MG/0.9 ML
     Route: 058
     Dates: start: 202208, end: 2022
  2. ACTEMRA [Suspect]
     Active Substance: TOCILIZUMAB
  3. ACTEMRA [Suspect]
     Active Substance: TOCILIZUMAB
     Indication: Polymyalgia rheumatica
     Route: 058
     Dates: start: 202306
  4. ACTEMRA [Suspect]
     Active Substance: TOCILIZUMAB
  5. PREDNISONE [Suspect]
     Active Substance: PREDNISONE
     Indication: Giant cell arteritis
     Route: 065
     Dates: start: 202210
  6. PREDNISONE [Suspect]
     Active Substance: PREDNISONE
     Route: 065
  7. FORTEO [Concomitant]
     Active Substance: TERIPARATIDE
     Indication: Blood parathyroid hormone
     Route: 058
     Dates: start: 2022
  8. FORTEO [Concomitant]
     Active Substance: TERIPARATIDE
     Indication: Bone density decreased
     Route: 058
     Dates: start: 2021
  9. CALCIUM\VITAMIN D [Concomitant]
     Active Substance: CALCIUM\VITAMIN D
     Route: 048

REACTIONS (14)
  - Blood creatinine increased [Recovered/Resolved]
  - Occupational exposure to product [Unknown]
  - Product dose omission issue [Unknown]
  - Syringe issue [Unknown]
  - Syringe issue [Unknown]
  - Hypoacusis [Unknown]
  - Visual impairment [Unknown]
  - Wrong technique in product usage process [Unknown]
  - Osteonecrosis of jaw [Recovered/Resolved]
  - Blood calcium increased [Recovered/Resolved]
  - Pain [Not Recovered/Not Resolved]
  - Poor quality sleep [Not Recovered/Not Resolved]
  - Urinary tract infection [Not Recovered/Not Resolved]
  - Somnolence [Not Recovered/Not Resolved]

NARRATIVE: CASE EVENT DATE: 20221201
